FAERS Safety Report 6526893-X (Version None)
Quarter: 2010Q1

REPORT INFORMATION
  Report Type: 
  Country: None (occurrence: None)
  Receive Date: 20100105
  Receipt Date: 20091228
  Transmission Date: 20100710
  Serious: Yes (Hospitalization)
  Sender: FDA-Public Use
  Company Number: PHHO2009US15693

PATIENT
  Sex: Male
  Weight: 45.9 kg

DRUGS (13)
  1. AMN107 AMN+CAP [Suspect]
     Indication: LEUKAEMIA
     Dosage: 300MG DAILY
     Route: 048
     Dates: start: 20091203, end: 20091209
  2. AMN107 AMN+CAP [Suspect]
     Dosage: 300 MG, BID
     Route: 048
     Dates: start: 20091210, end: 20091214
  3. AMN107 AMN+CAP [Suspect]
     Dosage: 300 MG, QD
  4. DAPSONE [Suspect]
     Dosage: 50MG QPM
  5. CLONIDINE [Concomitant]
  6. ENALAPRIL [Concomitant]
  7. LANSOPRAZOLE [Concomitant]
  8. LORAZEPAM [Concomitant]
  9. MICAFUNGIN [Concomitant]
  10. PREDNISONE [Concomitant]
  11. TACROLIMUS [Concomitant]
  12. URSODIOL [Concomitant]
  13. FORTAMET [Concomitant]

REACTIONS (4)
  - CHEST DISCOMFORT [None]
  - CYANOSIS [None]
  - HYPOXIA [None]
  - METHAEMOGLOBINAEMIA [None]
